FAERS Safety Report 4292447-1 (Version None)
Quarter: 2004Q1

REPORT INFORMATION
  Report Type: 
  Country: None (occurrence: None)
  Receive Date: 20040211
  Receipt Date: 20040211
  Transmission Date: 20041129
  Serious: No
  Sender: FDA-Public Use
  Company Number: None

PATIENT
  Age: 81 Year
  Sex: Male
  Weight: 52.6173 kg

DRUGS (1)
  1. AVELOX [Suspect]
     Dosage: 400MG PO QD
     Route: 048

REACTIONS (3)
  - HEPATITIS [None]
  - JAUNDICE [None]
  - PRURITUS [None]
